FAERS Safety Report 6230983-9 (Version None)
Quarter: 2009Q2

REPORT INFORMATION
  Report Type: 
  Country: None (occurrence: None)
  Receive Date: 20090616
  Receipt Date: 20090615
  Transmission Date: 20091009
  Serious: Yes (Hospitalization)
  Sender: FDA-Public Use
  Company Number: US-BAYER-200915142NA

PATIENT
  Age: 25 Year
  Sex: Female
  Weight: 77 kg

DRUGS (1)
  1. MIRENA [Suspect]
     Indication: CONTRACEPTION
     Route: 015
     Dates: start: 20080701

REACTIONS (3)
  - AMENORRHOEA [None]
  - CERVIX DISORDER [None]
  - NEPHROLITHIASIS [None]
